FAERS Safety Report 5688244-2 (Version None)
Quarter: 2008Q1

REPORT INFORMATION
  Report Type: 
  Country: None (occurrence: None)
  Receive Date: 20080331
  Receipt Date: 20080320
  Transmission Date: 20080703
  Serious: Yes (Hospitalization, Other)
  Sender: FDA-Public Use
  Company Number: US-JNJFOC-20080305265

PATIENT
  Sex: Male
  Weight: 102.97 kg

DRUGS (9)
  1. REMICADE [Suspect]
     Route: 042
  2. REMICADE [Suspect]
     Indication: CROHN'S DISEASE
     Route: 042
  3. ASACOL [Concomitant]
  4. ATENOLOL [Concomitant]
  5. NEXIUM [Concomitant]
  6. ASPIRIN [Concomitant]
  7. MINOCYCLINE HCL [Concomitant]
  8. ALTACE [Concomitant]
  9. SPIRIVA [Concomitant]
     Route: 055

REACTIONS (1)
  - GASTRIC CANCER [None]
